FAERS Safety Report 14243071 (Version 1)
Quarter: 2017Q4

REPORT INFORMATION
  Report Type: Spontaneous
  Country: DE (occurrence: DE)
  Receive Date: 20171201
  Receipt Date: 20171201
  Transmission Date: 20180321
  Serious: Yes (Other)
  Sender: FDA-Public Use
  Company Number: DE-MYLANLABS-2017M1060817

PATIENT
  Sex: Male

DRUGS (1)
  1. FORMOTOP NOVOLIZER [Suspect]
     Active Substance: FORMOTEROL FUMARATE
     Indication: PRODUCT USED FOR UNKNOWN INDICATION
     Dosage: UNK
     Route: 055

REACTIONS (5)
  - Product packaging issue [Unknown]
  - Productive cough [Unknown]
  - Drug ineffective [Unknown]
  - Dyspnoea [Unknown]
  - Wrong technique in product usage process [Unknown]
